FAERS Safety Report 9843143 (Version 2)
Quarter: 2014Q1

REPORT INFORMATION
  Report Type: Report from Study
  Country: US (occurrence: US)
  Receive Date: 20140124
  Receipt Date: 20140207
  Transmission Date: 20141002
  Serious: Yes (Other)
  Sender: FDA-Public Use
  Company Number: US-ABBVIE-14P-163-1192807-00

PATIENT
  Sex: Male

DRUGS (2)
  1. ANDROGEL [Suspect]
     Indication: BLOOD TESTOSTERONE DECREASED
     Dates: end: 201311
  2. BLOOD PRESSURE MEDICATIONS [Suspect]
     Indication: HYPERTENSION

REACTIONS (26)
  - Transient ischaemic attack [Unknown]
  - Transient ischaemic attack [Unknown]
  - Transient ischaemic attack [Unknown]
  - Transient ischaemic attack [Unknown]
  - Transient ischaemic attack [Unknown]
  - Transient ischaemic attack [Unknown]
  - Transient ischaemic attack [Unknown]
  - Transient ischaemic attack [Unknown]
  - Transient ischaemic attack [Unknown]
  - Transient ischaemic attack [Unknown]
  - Hypertension [Unknown]
  - Malaise [Unknown]
  - Hypoglycaemia [Unknown]
  - Glucose tolerance impaired [Unknown]
  - Unevaluable event [Unknown]
  - Reflexes abnormal [Unknown]
  - Impaired driving ability [Unknown]
  - Speech disorder [Unknown]
  - Mental impairment [Unknown]
  - Hypertension [Unknown]
  - Liver disorder [Unknown]
  - Fear of death [Unknown]
  - Fear of disease [Unknown]
  - Drug administration error [Unknown]
  - Overweight [Unknown]
  - Pollakiuria [Unknown]
